FAERS Safety Report 23808214 (Version 2)
Quarter: 2024Q2

REPORT INFORMATION
  Report Type: Spontaneous
  Country: US (occurrence: US)
  Receive Date: 20240502
  Receipt Date: 20240524
  Transmission Date: 20240716
  Serious: Yes (Death, Hospitalization, Other)
  Sender: FDA-Public Use
  Company Number: US-INCYTE CORPORATION-2024IN004586

PATIENT

DRUGS (7)
  1. JAKAFI [Suspect]
     Active Substance: RUXOLITINIB
     Indication: Chronic graft versus host disease
     Dosage: UNK
     Route: 065
  2. BELUMOSUDIL [Suspect]
     Active Substance: BELUMOSUDIL
     Route: 065
  3. POSACONAZOLE [Suspect]
     Active Substance: POSACONAZOLE
     Dosage: UNK
     Route: 065
     Dates: end: 20240415
  4. VORICONAZOLE [Suspect]
     Active Substance: VORICONAZOLE
     Dosage: UNK
     Route: 065
     Dates: start: 20240415, end: 20240418
  5. AXATILIMAB [Concomitant]
     Active Substance: AXATILIMAB
     Indication: Chronic graft versus host disease
     Dosage: 28 MILLIGRAM, EVERY 2 WEEKS
     Route: 042
     Dates: start: 20240308, end: 20240321
  6. REZUROCK [Concomitant]
     Active Substance: BELUMOSUDIL
     Indication: Chronic graft versus host disease
     Dosage: UNK
     Route: 065
  7. TACOGEN [Concomitant]
     Indication: Chronic graft versus host disease
     Dosage: UNK
     Route: 065

REACTIONS (14)
  - Death [Fatal]
  - Pneumonia fungal [Recovering/Resolving]
  - Encephalopathy [Unknown]
  - Hypoxia [Unknown]
  - Gastric ulcer [Unknown]
  - Citrobacter infection [Unknown]
  - Enterococcal infection [Unknown]
  - Gastrointestinal haemorrhage [Unknown]
  - Fall [Unknown]
  - Head injury [Unknown]
  - Mental status changes [Unknown]
  - Fungal infection [Unknown]
  - Oesophagitis [Unknown]
  - Sinusitis [Unknown]

NARRATIVE: CASE EVENT DATE: 20240405
